FAERS Safety Report 12379831 (Version 1)
Quarter: 2016Q2

REPORT INFORMATION
  Report Type: Spontaneous
  Country: US (occurrence: US)
  Receive Date: 20160518
  Receipt Date: 20160518
  Transmission Date: 20160815
  Serious: No
  Sender: FDA-Public Use
  Company Number: US-MACLEODS PHARMACEUTICALS US LTD-MAC2016002555

PATIENT

DRUGS (1)
  1. CLOPIDOGREL [Suspect]
     Active Substance: CLOPIDOGREL BISULFATE
     Indication: ANEURYSM
     Dosage: 75 MG
     Route: 048

REACTIONS (3)
  - Epistaxis [Recovered/Resolved]
  - Product substitution issue [Recovered/Resolved]
  - Angina bullosa haemorrhagica [Recovered/Resolved]
